FAERS Safety Report 15268690 (Version 2)
Quarter: 2019Q3

REPORT INFORMATION
  Report Type: Spontaneous
  Country: US (occurrence: US)
  Receive Date: 20180813
  Receipt Date: 20190820
  Transmission Date: 20191004
  Serious: No
  Sender: FDA-Public Use
  Company Number: US-JNJFOC-20180800586

PATIENT
  Age: 10 Year
  Sex: Male

DRUGS (7)
  1. RISPERDAL [Suspect]
     Active Substance: RISPERIDONE
     Dosage: 1MG/ML
     Route: 048
     Dates: start: 20130304, end: 20130422
  2. RISPERDAL [Suspect]
     Active Substance: RISPERIDONE
     Dosage: 1MG/ML
     Route: 048
     Dates: start: 20130712
  3. RISPERDAL [Suspect]
     Active Substance: RISPERIDONE
     Dosage: 1MG/ML
     Route: 048
     Dates: start: 20150102
  4. RISPERDAL [Suspect]
     Active Substance: RISPERIDONE
     Dosage: 1MG/ML
     Route: 048
     Dates: start: 20140325, end: 20140922
  5. RISPERIDONE. [Suspect]
     Active Substance: RISPERIDONE
     Route: 048
  6. RISPERDAL [Suspect]
     Active Substance: RISPERIDONE
     Indication: ATTENTION DEFICIT/HYPERACTIVITY DISORDER
     Dosage: 1MG/ML
     Route: 048
     Dates: start: 20130227, end: 20150602
  7. RISPERDAL [Suspect]
     Active Substance: RISPERIDONE
     Indication: ATTENTION DEFICIT/HYPERACTIVITY DISORDER
     Dosage: 1MG/ML
     Route: 048
     Dates: start: 20100209, end: 20121124

REACTIONS (4)
  - Emotional distress [Unknown]
  - Gynaecomastia [Unknown]
  - Product use in unapproved indication [Unknown]
  - Off label use [Unknown]

NARRATIVE: CASE EVENT DATE: 20100209
